FAERS Safety Report 13859642 (Version 1)
Quarter: 2017Q3

REPORT INFORMATION
  Report Type: Spontaneous
  Country: US (occurrence: US)
  Receive Date: 20170811
  Receipt Date: 20170811
  Transmission Date: 20171127
  Serious: Yes (Death)
  Sender: FDA-Public Use
  Company Number: None

PATIENT
  Age: 65 Year
  Sex: Female

DRUGS (1)
  1. UPTRAVI [Suspect]
     Active Substance: SELEXIPAG
     Indication: PULMONARY HYPERTENSION
     Dates: start: 20170707, end: 20170714

REACTIONS (8)
  - Vomiting [None]
  - Hepatic encephalopathy [None]
  - Fatigue [None]
  - Jaundice [None]
  - Coagulopathy [None]
  - Asthenia [None]
  - Acute hepatic failure [None]
  - Nausea [None]

NARRATIVE: CASE EVENT DATE: 20170810
